FAERS Safety Report 18424987 (Version 3)
Quarter: 2020Q4

REPORT INFORMATION
  Report Type: Report from Study
  Country: None (occurrence: IL)
  Receive Date: 20201026
  Receipt Date: 20201103
  Transmission Date: 20210114
  Serious: Yes (Death)
  Sender: FDA-Public Use
  Company Number: IL-ABBVIE-20K-082-3623885-00

PATIENT
  Age: 67 Year
  Sex: Male

DRUGS (2)
  1. DUODOPA [Suspect]
     Active Substance: CARBIDOPA\LEVODOPA
  2. DUODOPA [Suspect]
     Active Substance: CARBIDOPA\LEVODOPA
     Indication: PARKINSON^S DISEASE
     Dosage: CD 2 (ML/H) ED 1 (ML) MD (ML) 9.0 THERAPY DURATION 16 (HRS), 20 MG/ML 5 MG/ML
     Route: 050
     Dates: start: 20160627

REACTIONS (2)
  - Pneumonia [Fatal]
  - Aspiration [Unknown]
